FAERS Safety Report 15480093 (Version 1)
Quarter: 2018Q4

REPORT INFORMATION
  Report Type: Spontaneous
  Country: CO (occurrence: CO)
  Receive Date: 20181009
  Receipt Date: 20181009
  Transmission Date: 20190205
  Serious: Yes (Hospitalization, Other)
  Sender: FDA-Public Use
  Company Number: CO-CELGENEUS-COL-20180706367

PATIENT
  Age: 53 Year
  Sex: Male

DRUGS (8)
  1. MORPHINE [Concomitant]
     Active Substance: MORPHINE
     Indication: CHEST PAIN
  2. ABRAXANE [Suspect]
     Active Substance: PACLITAXEL
     Indication: PANCREATIC CARCINOMA
     Dosage: 220MG IN 1 INY IN 1FCO SOLUTION
     Route: 041
     Dates: start: 20180315, end: 20180523
  3. ABRAXANE [Suspect]
     Active Substance: PACLITAXEL
     Dosage: 220 MILLIGRAM
     Route: 041
     Dates: start: 20180919
  4. MORPHINE [Concomitant]
     Active Substance: MORPHINE
     Indication: ABDOMINAL PAIN
     Route: 065
  5. HYOSCINE BUTYLBROMIDE [Concomitant]
     Active Substance: BUTYLSCOPOLAMINE
     Indication: CHEST PAIN
  6. DICLOFENAC [Concomitant]
     Active Substance: DICLOFENAC
     Indication: ABDOMINAL PAIN
     Route: 065
  7. DICLOFENAC [Concomitant]
     Active Substance: DICLOFENAC
     Indication: CHEST PAIN
  8. HYOSCINE BUTYLBROMIDE [Concomitant]
     Active Substance: BUTYLSCOPOLAMINE
     Indication: ABDOMINAL PAIN
     Route: 065

REACTIONS (5)
  - Back pain [Unknown]
  - Chest pain [Not Recovered/Not Resolved]
  - Abdominal pain [Unknown]
  - Chest pain [Unknown]
  - Abdominal pain [Not Recovered/Not Resolved]

NARRATIVE: CASE EVENT DATE: 20180712
